FAERS Safety Report 22618944 (Version 1)
Quarter: 2023Q2

REPORT INFORMATION
  Report Type: Spontaneous
  Country: CN (occurrence: CN)
  Receive Date: 20230620
  Receipt Date: 20230620
  Transmission Date: 20230721
  Serious: Yes (Hospitalization, Other)
  Sender: FDA-Public Use
  Company Number: None

PATIENT
  Age: 30 Year
  Sex: Male
  Weight: 95 kg

DRUGS (17)
  1. CYCLOPHOSPHAMIDE [Suspect]
     Active Substance: CYCLOPHOSPHAMIDE
     Indication: Acute lymphocytic leukaemia
     Dosage: 1 CYCLE OF VDCP THERAPY
     Route: 065
     Dates: start: 20230420
  2. CYCLOPHOSPHAMIDE [Suspect]
     Active Substance: CYCLOPHOSPHAMIDE
     Indication: Gene mutation
     Dosage: 1.6 G, QD, DILUTED WITH 250 ML OF NS, D1
     Route: 041
     Dates: start: 20230425, end: 20230425
  3. ETOPOSIDE [Suspect]
     Active Substance: ETOPOSIDE
     Indication: Acute lymphocytic leukaemia
     Dosage: 5 ML, QD, DILUTED WITH 500 ML OF NS, D1-3
     Route: 041
     Dates: start: 20230425, end: 20230427
  4. ETOPOSIDE [Suspect]
     Active Substance: ETOPOSIDE
     Indication: Gene mutation
  5. VINDESINE SULFATE [Suspect]
     Active Substance: VINDESINE SULFATE
     Indication: Acute lymphocytic leukaemia
     Dosage: 4 MG, QD, DILUTED WITH 40 ML OF NS, D1
     Route: 042
     Dates: start: 20230425, end: 20230425
  6. VINDESINE SULFATE [Suspect]
     Active Substance: VINDESINE SULFATE
     Indication: Gene mutation
  7. CYTARABINE [Suspect]
     Active Substance: CYTARABINE
     Indication: Acute lymphocytic leukaemia
     Dosage: 0.2 G, QD, DILUTED WITH 100 ML OF SODIUM CHLORIDE, D1-7
     Route: 041
     Dates: start: 20230425, end: 20230501
  8. CYTARABINE [Suspect]
     Active Substance: CYTARABINE
     Indication: Gene mutation
  9. SODIUM CHLORIDE [Suspect]
     Active Substance: SODIUM CHLORIDE
     Indication: Medication dilution
     Dosage: 40 ML, QD, USED TO DILUTE 4 MG OF VINDESINE, D1
     Route: 042
     Dates: start: 20230425, end: 20230425
  10. SODIUM CHLORIDE [Suspect]
     Active Substance: SODIUM CHLORIDE
     Dosage: 500 ML, QD, USED TO DILUTE 5 ML OF ETOPOSIDE, D1-3
     Route: 041
     Dates: start: 20230425, end: 20230427
  11. SODIUM CHLORIDE [Suspect]
     Active Substance: SODIUM CHLORIDE
     Dosage: 250 ML, QD, USED TO DILUTE 1.6 G OF CYCLOPHOSPHAMIDE, D1
     Route: 041
     Dates: start: 20230425, end: 20230425
  12. SODIUM CHLORIDE [Suspect]
     Active Substance: SODIUM CHLORIDE
     Dosage: 100 ML, QD, USED TO DILUTE 0.2 G OF CYTARABINE, D1-7
     Route: 041
     Dates: start: 20230425, end: 20230501
  13. IMATINIB [Suspect]
     Active Substance: IMATINIB
     Dosage: 1 CYCLE OF IMATINIB + VDCP, 1 CYCLE OF IMATINIB + CAM THERAPY, 1 CYCLE OF IMATINIB + MTX THERAPY
     Route: 065
     Dates: start: 20230420
  14. IMATINIB [Suspect]
     Active Substance: IMATINIB
     Dosage: 1 CYCLE OF IMATINIB + CAM THERAPY
     Route: 065
     Dates: start: 20230420
  15. IMATINIB [Suspect]
     Active Substance: IMATINIB
     Dosage: 1 CYCLE OF IMATINIB + MTX THERAPY
     Route: 065
     Dates: start: 20230420
  16. METHOTREXATE [Suspect]
     Active Substance: METHOTREXATE
     Dosage: 1 CYCLE OF IMATINIB + MTX THERAPY
     Route: 065
     Dates: start: 20230420
  17. PREDNISOLONE [Suspect]
     Active Substance: PREDNISOLONE
     Dosage: 1 CYCLE OF IMATINIB + VDCP THERAPY
     Route: 065
     Dates: start: 20230420

REACTIONS (1)
  - Full blood count decreased [Recovering/Resolving]

NARRATIVE: CASE EVENT DATE: 20230505
